FAERS Safety Report 21871789 (Version 1)
Quarter: 2023Q1

REPORT INFORMATION
  Report Type: Spontaneous
  Country: US (occurrence: None)
  Receive Date: 20230113
  Receipt Date: 20230113
  Transmission Date: 20230418
  Serious: Yes (Death)
  Sender: FDA-Public Use
  Company Number: None

PATIENT
  Age: 70 Year
  Sex: Female
  Weight: 82.55 kg

DRUGS (4)
  1. LEUKERAN [Suspect]
     Active Substance: CHLORAMBUCIL
     Indication: B-cell lymphoma
     Dosage: OTHER FREQUENCY : ONE DOSE;?
     Route: 048
     Dates: start: 202212
  2. COZAAR [Concomitant]
     Active Substance: LOSARTAN POTASSIUM
  3. SYNTHROID [Concomitant]
     Active Substance: LEVOTHYROXINE SODIUM
  4. ZYLOPRIM [Concomitant]
     Active Substance: ALLOPURINOL

REACTIONS (1)
  - Death [None]
